FAERS Safety Report 15724647 (Version 1)
Quarter: 2018Q4

REPORT INFORMATION
  Report Type: Spontaneous
  Country: US (occurrence: US)
  Receive Date: 20181214
  Receipt Date: 20181214
  Transmission Date: 20190205
  Serious: Yes (Other)
  Sender: FDA-Public Use
  Company Number: PHEH2018US052750

PATIENT
  Age: 61 Year
  Sex: Female

DRUGS (1)
  1. TASIGNA [Suspect]
     Active Substance: NILOTINIB
     Indication: CHRONIC MYELOID LEUKAEMIA
     Dosage: UNK
     Route: 065
     Dates: start: 20101122, end: 201805

REACTIONS (7)
  - Coronary artery disease [Unknown]
  - Renal failure [Unknown]
  - Cardiac failure congestive [Unknown]
  - Diabetes mellitus [Unknown]
  - Peripheral arterial occlusive disease [Unknown]
  - Renal artery stenosis [Unknown]
  - Myocardial infarction [Unknown]

NARRATIVE: CASE EVENT DATE: 2010
